FAERS Safety Report 4603151-1 (Version None)
Quarter: 2005Q1

REPORT INFORMATION
  Report Type: 
  Country: None (occurrence: None)
  Receive Date: 20050307
  Receipt Date: 20030320
  Transmission Date: 20050727
  Serious: Yes (Death, Hospitalization)
  Sender: FDA-Public Use
  Company Number: F02200300040

PATIENT
  Age: 69 Year
  Sex: Male

DRUGS (9)
  1. XATRAL - (ALFUZOSIN) - TABLET PR - 10 MG [Suspect]
     Indication: BENIGN PROSTATIC HYPERPLASIA
     Dosage: 10 MG OD, ORAL
     Route: 048
     Dates: start: 20001011
  2. DIAFUSOR (GLYCERYL TRINITRATE) [Concomitant]
  3. AMLOR (AMLODIPINE BESILATE) [Concomitant]
  4. LASIX [Concomitant]
  5. ZESTRIL [Concomitant]
  6. PHYSIOTENS (MOXONIDINE) [Concomitant]
  7. PRAXILENE (NAFTIDROFURYL OXALATE) [Concomitant]
  8. PRAVASTATIN [Concomitant]
  9. PREVISCAN (FLUINDOINE) [Concomitant]

REACTIONS (24)
  - ASCITES [None]
  - ASTHENIA [None]
  - CALCINOSIS [None]
  - COLORECTAL CANCER [None]
  - COLORECTAL CANCER METASTATIC [None]
  - CONSTIPATION [None]
  - DYSGEUSIA [None]
  - HEPATIC LESION [None]
  - HEPATOMEGALY [None]
  - HIATUS HERNIA [None]
  - METASTASES TO BONE [None]
  - METASTASES TO GASTROINTESTINAL TRACT [None]
  - METASTASES TO LIVER [None]
  - MICROCYTIC ANAEMIA [None]
  - NOCTURIA [None]
  - OEDEMA PERIPHERAL [None]
  - PAIN [None]
  - POLYURIA [None]
  - RENAL DISORDER [None]
  - SCIATICA [None]
  - ULTRASOUND ABDOMEN ABNORMAL [None]
  - ULTRASOUND PELVIS ABNORMAL [None]
  - VEIN DISORDER [None]
  - WEIGHT DECREASED [None]
